FAERS Safety Report 7093145-1 (Version None)
Quarter: 2010Q4

REPORT INFORMATION
  Report Type: 
  Country: None (occurrence: None)
  Receive Date: 20101110
  Receipt Date: 20090207
  Transmission Date: 20110411
  Serious: Yes (Life-Threatening, Hospitalization)
  Sender: FDA-Public Use
  Company Number: US-KINGPHARMUSA00001-K200900124

PATIENT
  Age: 18 Year
  Sex: Male
  Weight: 133 kg

DRUGS (1)
  1. BICILLIN L-A [Suspect]
     Indication: STREPTOCOCCAL INFECTION
     Dosage: UNK
     Route: 030
     Dates: start: 20090101, end: 20090101

REACTIONS (1)
  - RHABDOMYOLYSIS [None]
